FAERS Safety Report 5901968-4 (Version None)
Quarter: 2008Q3

REPORT INFORMATION
  Report Type: 
  Country: None (occurrence: None)
  Receive Date: 20080929
  Receipt Date: 20080923
  Transmission Date: 20090109
  Serious: Yes (Hospitalization, Other)
  Sender: FDA-Public Use
  Company Number: PHHO2008CA02594

PATIENT
  Sex: Male
  Weight: 85 kg

DRUGS (3)
  1. TASIGNA [Suspect]
     Indication: CHRONIC MYELOID LEUKAEMIA
     Dosage: 400 MG, BID
     Route: 048
     Dates: start: 20080109, end: 20080211
  2. TASIGNA [Suspect]
     Dosage: NO TREATMENT
     Dates: start: 20080212, end: 20080214
  3. TASIGNA [Suspect]
     Dosage: 400 MG, BID
     Route: 048
     Dates: start: 20080215, end: 20080220

REACTIONS (5)
  - ARACHNOID CYST [None]
  - DIZZINESS [None]
  - FALL [None]
  - NEUTROPENIA [None]
  - SYNCOPE [None]
